FAERS Safety Report 20855484 (Version 1)
Quarter: 2022Q2

REPORT INFORMATION
  Report Type: Report from Study
  Country: IE (occurrence: IE)
  Receive Date: 20220520
  Receipt Date: 20220520
  Transmission Date: 20220721
  Serious: Yes (Hospitalization, Other)
  Sender: FDA-Public Use
  Company Number: IE-BRISTOL-MYERS SQUIBB COMPANY-2022-039265

PATIENT
  Age: 66 Year
  Sex: Female

DRUGS (1)
  1. NIVOLUMAB [Suspect]
     Active Substance: NIVOLUMAB
     Indication: Non-small cell lung cancer metastatic
     Route: 065
     Dates: start: 20181002

REACTIONS (4)
  - Loss of consciousness [Recovering/Resolving]
  - Dehydration [Recovering/Resolving]
  - Head injury [Recovering/Resolving]
  - Constipation [Recovering/Resolving]
